FAERS Safety Report 7219463-1 (Version None)
Quarter: 2011Q1

REPORT INFORMATION
  Report Type: 
  Country: None (occurrence: None)
  Receive Date: 20110111
  Receipt Date: 20110103
  Transmission Date: 20110831
  Serious: Yes (Other)
  Sender: FDA-Public Use
  Company Number: US-RB-018053-11

PATIENT
  Age: 89 Year
  Sex: Male

DRUGS (2)
  1. COUMADIN [Concomitant]
     Indication: THROMBOSIS
     Dosage: PATIENT HAS BEEN TAKING PRODUCT FOR APPROXIMATELY FOR 5 YEARS
  2. MUCINEX [Suspect]
     Indication: RESPIRATORY TRACT CONGESTION
     Dosage: TAKEN FOR ABOUT 10 DAYS, STARTING ON 01-DEC-2010 AND WAS LAST TAKEN ON 09-DEC-2010 OR 10-DEC-2010.
     Route: 048

REACTIONS (2)
  - INCORRECT DRUG ADMINISTRATION DURATION [None]
  - THROMBOCYTOPENIA [None]
